FAERS Safety Report 5291478-2 (Version None)
Quarter: 2007Q2

REPORT INFORMATION
  Report Type: 
  Country: None (occurrence: None)
  Receive Date: 20070403
  Receipt Date: 20070326
  Transmission Date: 20071010
  Serious: Yes (Other)
  Sender: FDA-Public Use
  Company Number: 232347K07USA

PATIENT
  Age: 60 Year
  Sex: Female

DRUGS (3)
  1. REBIF [Suspect]
     Indication: MULTIPLE SCLEROSIS
     Dosage: 44 MCG, 3 IN 1 WEEKS, SUBCUTANEOUS
     Route: 058
     Dates: start: 20060807
  2. METFORMIN [Concomitant]
  3. HYDRALAZINE HCL [Concomitant]

REACTIONS (3)
  - DEPRESSED MOOD [None]
  - FATIGUE [None]
  - SYSTEMIC LUPUS ERYTHEMATOSUS [None]
